FAERS Safety Report 17126877 (Version 3)
Quarter: 2020Q1

REPORT INFORMATION
  Report Type: Spontaneous
  Country: US (occurrence: US)
  Receive Date: 20191209
  Receipt Date: 20200113
  Transmission Date: 20200409
  Serious: Yes (Hospitalization)
  Sender: FDA-Public Use
  Company Number: US-GLAXOSMITHKLINE-US2019AMR215669

PATIENT
  Sex: Female

DRUGS (1)
  1. BENLYSTA [Suspect]
     Active Substance: BELIMUMAB
     Indication: SYSTEMIC LUPUS ERYTHEMATOSUS
     Dosage: 10 MG/KG, WEEKS 0, 2, 4, THEN EVERY 4 WEEKS
     Route: 042
     Dates: start: 201812

REACTIONS (5)
  - Malaise [Unknown]
  - Cough [Unknown]
  - Immune system disorder [Unknown]
  - Nasopharyngitis [Unknown]
  - Abdominal pain upper [Unknown]
